FAERS Safety Report 22191108 (Version 1)
Quarter: 2023Q2

REPORT INFORMATION
  Report Type: Report from Study
  Country: US (occurrence: US)
  Receive Date: 20230410
  Receipt Date: 20230410
  Transmission Date: 20230721
  Serious: Yes (Other)
  Sender: FDA-Public Use
  Company Number: US-MYLANLABS-2023M1036270

PATIENT
  Age: 63 Year
  Sex: Female
  Weight: 79.365 kg

DRUGS (2)
  1. GABAPENTIN [Suspect]
     Active Substance: GABAPENTIN
     Indication: Pain
     Dosage: 4800 MILLIGRAM, QD
     Route: 065
     Dates: start: 2014
  2. GABAPENTIN [Suspect]
     Active Substance: GABAPENTIN
     Dosage: 2400 MILLIGRAM, QD
     Route: 065

REACTIONS (6)
  - Helminthic infection [Recovered/Resolved]
  - Psychotic disorder [Recovered/Resolved]
  - Injury [Recovered/Resolved]
  - Eating disorder [Recovered/Resolved]
  - Scar [Recovered/Resolved]
  - Emotional disorder [Recovered/Resolved]

NARRATIVE: CASE EVENT DATE: 20220301
